FAERS Safety Report 7458251-8 (Version None)
Quarter: 2011Q2

REPORT INFORMATION
  Report Type: 
  Country: None (occurrence: None)
  Receive Date: 20110504
  Receipt Date: 20110427
  Transmission Date: 20111010
  Serious: Yes (Hospitalization, Other)
  Sender: FDA-Public Use
  Company Number: US-MERCK-1012USA03782

PATIENT
  Age: 58 Year
  Sex: Female

DRUGS (4)
  1. FOSAMAX [Suspect]
     Route: 048
     Dates: start: 19980101, end: 20100101
  2. CALCIUM (UNSPECIFIED) AND VITAMIN D (UNSPECIFIED) [Concomitant]
     Route: 048
  3. FOSAMAX [Suspect]
     Indication: OSTEOPOROSIS
     Route: 048
     Dates: start: 19980101, end: 20100101
  4. VITAMINS (UNSPECIFIED) [Concomitant]
     Route: 065

REACTIONS (6)
  - GASTROOESOPHAGEAL REFLUX DISEASE [None]
  - HOSPITALISATION [None]
  - DEPRESSION [None]
  - PAIN [None]
  - CARDIAC DISORDER [None]
  - FEMUR FRACTURE [None]
